FAERS Safety Report 4357711-6 (Version None)
Quarter: 2004Q2

REPORT INFORMATION
  Report Type: 
  Country: None (occurrence: None)
  Receive Date: 20040513
  Receipt Date: 20040506
  Transmission Date: 20050107
  Serious: Yes (Other)
  Sender: FDA-Public Use
  Company Number: US-GLAXOSMITHKLINE-A0509810A

PATIENT
  Age: 16 Year
  Sex: Male

DRUGS (1)
  1. PAXIL [Suspect]
     Indication: ILL-DEFINED DISORDER
     Dosage: 60MG PER DAY
     Route: 048

REACTIONS (1)
  - MUSCLE ATROPHY [None]
